FAERS Safety Report 8181872-4 (Version None)
Quarter: 2012Q1

REPORT INFORMATION
  Report Type: 
  Country: None (occurrence: None)
  Receive Date: 20120302
  Receipt Date: 20120222
  Transmission Date: 20120608
  Serious: Yes (Hospitalization)
  Sender: FDA-Public Use
  Company Number: GB-ROCHE-772802

PATIENT
  Sex: Female
  Weight: 102 kg

DRUGS (13)
  1. BENDROFLUMETHIAZIDE [Concomitant]
  2. HYDROXYCHLOROQUINE SULFATE [Concomitant]
  3. FERROUS SULFATE TAB [Concomitant]
  4. FLUTICASONE PROPIONATE [Concomitant]
     Dosage: DOSE: 4 PUFFS
  5. VENTOLIN [Concomitant]
     Dosage: DOSEL: 4 PUFFS
  6. ZAFIRLUKAST [Concomitant]
  7. DOXYCYCLINE [Concomitant]
     Dates: start: 20110302, end: 20110312
  8. FOLIC ACID [Concomitant]
  9. OMEPRAZOLE [Concomitant]
  10. THEOPHYLLINE [Concomitant]
  11. MABTHERA [Suspect]
     Indication: RHEUMATOID ARTHRITIS
     Dosage: FREQUENCY: AS REQUIRED PRIOR. FORM: INFUSION.DATE OF LAST DOSE PRIOR TO SAE: 25 FEB 2011
     Route: 042
  12. CELECOXIB [Concomitant]
  13. METHOTREXATE [Concomitant]

REACTIONS (1)
  - ASTHMA [None]
